FAERS Safety Report 7992618-4 (Version None)
Quarter: 2011Q4

REPORT INFORMATION
  Report Type: 
  Country: None (occurrence: None)
  Receive Date: 20111219
  Receipt Date: 20111213
  Transmission Date: 20120403
  Serious: No
  Sender: FDA-Public Use
  Company Number: US-PFIZER INC-2011279369

PATIENT
  Sex: Male

DRUGS (7)
  1. SUTENT [Suspect]
     Indication: METASTATIC RENAL CELL CARCINOMA
     Dosage: 50 MG, 1X/DAY
     Route: 048
     Dates: start: 20111031
  2. DECADRON [Concomitant]
     Dosage: 4 MG, 1X/DAY
     Dates: start: 20111024
  3. PROTONIX [Concomitant]
     Dosage: 40 MG, 1X/DAY
     Dates: start: 20111024
  4. CYCLOBENZAPRINE [Concomitant]
     Dosage: 10 MG, 1X/DAY
     Dates: start: 20110801
  5. DILAUDID [Concomitant]
     Dosage: 4 MG, AS NEEDED
     Dates: start: 20111021
  6. PROAIR HFA [Concomitant]
     Dosage: 2 PUFFS, FIUR TIMES DAILY, AS NEEDED
     Dates: start: 20110801
  7. PROMETHAZINE [Concomitant]
     Dosage: 25 MG, 2X/DAY
     Route: 048
     Dates: start: 20110801

REACTIONS (5)
  - NAUSEA [None]
  - VOMITING [None]
  - PAIN [None]
  - DECREASED APPETITE [None]
  - HAEMOPTYSIS [None]
